FAERS Safety Report 14309859 (Version 16)
Quarter: 2018Q4

REPORT INFORMATION
  Report Type: Spontaneous
  Country: DE (occurrence: DE)
  Receive Date: 20171220
  Receipt Date: 20181008
  Transmission Date: 20190204
  Serious: Yes (Other)
  Sender: FDA-Public Use
  Company Number: DE-PFIZER INC-2017539432

PATIENT
  Age: 55 Year
  Sex: Female
  Weight: 70 kg

DRUGS (12)
  1. PROPOFOL. [Concomitant]
     Active Substance: PROPOFOL
     Dosage: UNK
     Route: 042
  2. AKRINOR [Concomitant]
     Active Substance: CAFEDRINE HYDROCHLORIDE\THEODRENALINE
     Dosage: UNK
     Route: 042
  3. FRAGMIN [Suspect]
     Active Substance: DALTEPARIN SODIUM
     Indication: THROMBOSIS PROPHYLAXIS
  4. SEVOFLURANE. [Concomitant]
     Active Substance: SEVOFLURANE
     Dosage: UNK
     Route: 042
  5. DIPIDOLOR [Concomitant]
     Active Substance: PIRITRAMIDE
     Dosage: UNK
     Route: 042
  6. PARACETAMOL [Suspect]
     Active Substance: ACETAMINOPHEN
     Indication: KNEE OPERATION
     Dosage: UNK
     Route: 065
     Dates: start: 20170516, end: 20170517
  7. PANTOZOL [Suspect]
     Active Substance: PANTOPRAZOLE SODIUM
     Dosage: UNK
  8. TRAMAL LONG [Suspect]
     Active Substance: TRAMADOL
     Dosage: UNK
  9. FENTANYL. [Concomitant]
     Active Substance: FENTANYL
     Dosage: UNK
     Route: 042
  10. FRAGMIN [Suspect]
     Active Substance: DALTEPARIN SODIUM
     Indication: KNEE OPERATION
     Dosage: 5000 IU, UNK
     Route: 065
     Dates: start: 20170516, end: 20170519
  11. PANTOZOL [Suspect]
     Active Substance: PANTOPRAZOLE SODIUM
     Indication: KNEE OPERATION
     Dosage: 20 MG, UNK
     Route: 065
     Dates: start: 20170516, end: 20170517
  12. TRAMAL LONG [Suspect]
     Active Substance: TRAMADOL
     Indication: KNEE OPERATION
     Dosage: 50 MG, UNK
     Route: 065
     Dates: start: 20170516, end: 20170517

REACTIONS (19)
  - Intestinal dilatation [Recovered/Resolved]
  - Joint swelling [Recovered/Resolved]
  - Activated partial thromboplastin time prolonged [Unknown]
  - Bedridden [Recovered/Resolved]
  - Vomiting [Recovered/Resolved]
  - Blood creatinine increased [Unknown]
  - Cough [Recovered/Resolved]
  - Cardiovascular disorder [Recovered/Resolved]
  - Conjunctivitis [Recovered/Resolved]
  - Pallor [Recovered/Resolved]
  - Nasopharyngitis [Recovered/Resolved]
  - Fatigue [Recovered/Resolved]
  - Blood potassium increased [Unknown]
  - Condition aggravated [Recovered/Resolved]
  - Bronchitis [Recovered/Resolved]
  - Angioedema [Recovered/Resolved]
  - Muscle spasms [Recovered/Resolved]
  - Asthenia [Recovered/Resolved]
  - Nausea [Recovered/Resolved]

NARRATIVE: CASE EVENT DATE: 20170516
